FAERS Safety Report 17081981 (Version 1)
Quarter: 2019Q4

REPORT INFORMATION
  Report Type: Spontaneous
  Country: PR (occurrence: PR)
  Receive Date: 20191127
  Receipt Date: 20191127
  Transmission Date: 20200122
  Serious: Yes (Hospitalization)
  Sender: FDA-Public Use
  Company Number: PR-PFIZER INC-2019508520

PATIENT
  Age: 51 Year
  Sex: Female
  Weight: 71.67 kg

DRUGS (12)
  1. SYNTHROID [Concomitant]
     Active Substance: LEVOTHYROXINE SODIUM
     Indication: HYPOTHYROIDISM
     Dosage: 0.137 MG, DAILY(0.137MG BY MOUTH DAILY IN THE MORNING)
     Route: 048
  2. LIPITOR [Concomitant]
     Active Substance: ATORVASTATIN CALCIUM
     Indication: BLOOD CHOLESTEROL INCREASED
     Dosage: 20 MG, 1X/DAY(DAILY AT 6PM)
     Route: 048
  3. FOLIC ACID. [Concomitant]
     Active Substance: FOLIC ACID
     Dosage: 1 MG, DAILY(1MG DAILY IN THE MORNING)
  4. ZANAFLEX [Concomitant]
     Active Substance: TIZANIDINE HYDROCHLORIDE
     Indication: PAIN
  5. TRAZODONE [Concomitant]
     Active Substance: TRAZODONE HYDROCHLORIDE
     Indication: INSOMNIA
     Dosage: 100 MG, 1X/DAY(100MG BY MOUTH AT BEDTIME)
     Route: 048
  6. KLONOPIN [Concomitant]
     Active Substance: CLONAZEPAM
     Indication: INSOMNIA
     Dosage: 2 MG, 1X/DAY(2MG BY MOUTH AT BEDTIME)
     Route: 048
  7. XELJANZ XR [Suspect]
     Active Substance: TOFACITINIB CITRATE
     Indication: RHEUMATOID ARTHRITIS
     Dosage: 11 MG, 1X/DAY(11MG, 1 TABLET BY MOUTH IN THE MORNING)
     Route: 048
     Dates: start: 2018
  8. CATAFLAM [DICLOFENAC POTASSIUM] [Concomitant]
     Indication: FIBROMYALGIA
     Dosage: 100 MG, AS NEEDED (100MG BY MOUTH AS NEED FOR PAIN)
  9. ZANAFLEX [Concomitant]
     Active Substance: TIZANIDINE HYDROCHLORIDE
     Indication: FIBROMYALGIA
     Dosage: 4 MG, AS NEEDED (4MG BY MOUTH AS NEEDED FOR PAIN)
     Route: 048
  10. XELJANZ XR [Suspect]
     Active Substance: TOFACITINIB CITRATE
     Indication: PAIN
     Dosage: 11 MG, UNK
  11. EMGALITY [Concomitant]
     Active Substance: GALCANEZUMAB-GNLM
     Indication: MIGRAINE
     Dosage: UNK UNK, MONTHLY(MONTHLY INJECTION)
  12. PROZAC [Concomitant]
     Active Substance: FLUOXETINE HYDROCHLORIDE
     Indication: DEPRESSION
     Dosage: 80 MG, DAILY(80MG BY MOUTH DAILY)
     Route: 048

REACTIONS (8)
  - Joint swelling [Unknown]
  - Productive cough [Unknown]
  - Bronchitis [Recovering/Resolving]
  - Peripheral swelling [Unknown]
  - Fatigue [Recovering/Resolving]
  - Immune system disorder [Unknown]
  - Arthralgia [Unknown]
  - Malaise [Unknown]

NARRATIVE: CASE EVENT DATE: 20191030
